FAERS Safety Report 10415727 (Version 1)
Quarter: 2014Q3

REPORT INFORMATION
  Report Type: Spontaneous
  Country: US (occurrence: None)
  Receive Date: 20140827
  Receipt Date: 20140827
  Transmission Date: 20150326
  Serious: No
  Sender: FDA-Public Use
  Company Number: None

PATIENT
  Age: 55 Year
  Sex: Female

DRUGS (1)
  1. AVONEX [Suspect]
     Active Substance: INTERFERON BETA-1A
     Indication: MULTIPLE SCLEROSIS
     Route: 030
     Dates: start: 20140617, end: 20140717

REACTIONS (9)
  - Muscle spasms [None]
  - Flushing [None]
  - Influenza like illness [None]
  - Fatigue [None]
  - Pyrexia [None]
  - Nausea [None]
  - Dizziness [None]
  - Chills [None]
  - Night sweats [None]

NARRATIVE: CASE EVENT DATE: 20140711
